FAERS Safety Report 18967611 (Version 1)
Quarter: 2021Q1

REPORT INFORMATION
  Report Type: Spontaneous
  Country: CO (occurrence: CO)
  Receive Date: 20210304
  Receipt Date: 20210304
  Transmission Date: 20210420
  Serious: Yes (Life-Threatening, Hospitalization)
  Sender: FDA-Public Use
  Company Number: CO-STRIDES ARCOLAB LIMITED-2021SP002563

PATIENT
  Age: 16 Year
  Sex: Male

DRUGS (2)
  1. PARACETAMOL [Suspect]
     Active Substance: ACETAMINOPHEN
     Indication: PAIN MANAGEMENT
     Dosage: 500 MILLIGRAM, FOUR TABLETS
     Route: 048
  2. AMLODIPINE [Suspect]
     Active Substance: AMLODIPINE BESYLATE
     Indication: PAIN MANAGEMENT
     Dosage: 10 MILLIGRAM, SIX TABLETS
     Route: 048

REACTIONS (5)
  - Overdose [Unknown]
  - Non-cardiogenic pulmonary oedema [Unknown]
  - Medication error [Unknown]
  - Toxicity to various agents [Unknown]
  - Off label use [Unknown]
